FAERS Safety Report 24651843 (Version 3)
Quarter: 2025Q1

REPORT INFORMATION
  Report Type: Spontaneous
  Country: US (occurrence: US)
  Receive Date: 20241122
  Receipt Date: 20250127
  Transmission Date: 20250408
  Serious: Yes (Other)
  Sender: CSL BEHRING
  Company Number: US-BEH-2024185697

PATIENT
  Age: 6 Year
  Sex: Female

DRUGS (2)
  1. CORIFACT [Suspect]
     Active Substance: FACTOR XIII CONCENTRATE (HUMAN)
     Indication: Coagulation factor deficiency
     Dosage: 1300 IU, QMT
     Route: 042
     Dates: start: 201808
  2. CORIFACT [Suspect]
     Active Substance: FACTOR XIII CONCENTRATE (HUMAN)
     Indication: Haemorrhage
     Route: 042
     Dates: start: 20221206

REACTIONS (3)
  - Epistaxis [Unknown]
  - Epistaxis [Recovered/Resolved]
  - Ear injury [Unknown]

NARRATIVE: CASE EVENT DATE: 20241108
